FAERS Safety Report 8808540 (Version 1)
Quarter: 2012Q4

REPORT INFORMATION
  Report Type: 
  Country: US (occurrence: None)
  Receive Date: 20120920
  Receipt Date: 20120920
  Transmission Date: 20130627
  Serious: No
  Sender: FDA-Public Use
  Company Number: None

PATIENT
  Age: 49 Year
  Sex: Male
  Weight: 101 kg

DRUGS (2)
  1. KETOCONAZOLE [Suspect]
     Dosage: 1 Bid Top
     Route: 061
     Dates: start: 20120521, end: 20120609
  2. KETOCONAZOLE [Suspect]
     Dosage: 1 UD Top
     Route: 061
     Dates: start: 20120521, end: 20120609

REACTIONS (2)
  - Pruritus [None]
  - Skin disorder [None]
